FAERS Safety Report 4544530-0 (Version None)
Quarter: 2004Q4

REPORT INFORMATION
  Report Type: 
  Country: None (occurrence: None)
  Receive Date: 20041230
  Receipt Date: 20041222
  Transmission Date: 20050328
  Serious: No
  Sender: FDA-Public Use
  Company Number: 04H-163-0284499-00

PATIENT

DRUGS (3)
  1. LEUCOVORIN CALCIUM [Suspect]
     Indication: CHEMOTHERAPY
     Dosage: 20 MG/M2, DAY 1-5, INTRAVENOUS
     Route: 042
  2. FLUOROURACIL [Suspect]
     Indication: CHEMOTHERAPY
     Dosage: 320 MG, DAY 1-5, INTRAVENOUS
     Route: 042
  3. OXALIPLATIN [Suspect]
     Indication: CHEMOTHERAPY
     Dosage: 130 MG/M2, DAY 1, INFUSION

REACTIONS (2)
  - PARAESTHESIA [None]
  - THERAPEUTIC AGENT TOXICITY [None]
